FAERS Safety Report 21632323 (Version 1)
Quarter: 2022Q4

REPORT INFORMATION
  Report Type: Report from Study
  Country: CO (occurrence: CO)
  Receive Date: 20221123
  Receipt Date: 20221123
  Transmission Date: 20230112
  Serious: Yes (Other)
  Sender: FDA-Public Use
  Company Number: CO-ASTELLAS-2022US036466

PATIENT
  Age: 59 Year
  Sex: Female

DRUGS (2)
  1. TACROLIMUS [Suspect]
     Active Substance: TACROLIMUS
     Indication: Renal transplant
     Dosage: UNK UNK, UNKNOWN FREQ.
     Route: 048
  2. TACROLIMUS [Suspect]
     Active Substance: TACROLIMUS
     Route: 048
     Dates: start: 20200720

REACTIONS (8)
  - Large intestine polyp [Recovered/Resolved]
  - Colon dysplasia [Recovered/Resolved]
  - Hepatic cyst [Recovered/Resolved]
  - Weight fluctuation [Recovered/Resolved]
  - Diarrhoea [Recovered/Resolved]
  - Blood creatinine abnormal [Recovered/Resolved]
  - Immunosuppressant drug level abnormal [Not Recovered/Not Resolved]
  - Product use issue [Unknown]

NARRATIVE: CASE EVENT DATE: 20200720
